FAERS Safety Report 19495138 (Version 1)
Quarter: 2021Q3

REPORT INFORMATION
  Report Type: Spontaneous
  Country: DE (occurrence: DE)
  Receive Date: 20210705
  Receipt Date: 20210705
  Transmission Date: 20211014
  Serious: Yes (Hospitalization)
  Sender: FDA-Public Use
  Company Number: DE-AUROBINDO-AUR-APL-2021-028108

PATIENT
  Age: 54 Year
  Sex: Male

DRUGS (2)
  1. ACETYLSALICYLSAEURE [Suspect]
     Active Substance: ASPIRIN
     Indication: PRODUCT USED FOR UNKNOWN INDICATION
     Dosage: UNK UNK, AS NECESSARY
     Route: 048
  2. IBUPROFEN FILM?COATED TABLETS [Suspect]
     Active Substance: IBUPROFEN
     Indication: PRODUCT USED FOR UNKNOWN INDICATION
     Dosage: UNK UNK, AS NECESSARY
     Route: 048

REACTIONS (2)
  - Medication error [Unknown]
  - Headache [Unknown]
